FAERS Safety Report 4907854-0 (Version None)
Quarter: 2006Q1

REPORT INFORMATION
  Report Type: 
  Country: None (occurrence: None)
  Receive Date: 20060210
  Receipt Date: 20060203
  Transmission Date: 20060701
  Serious: Yes (Other)
  Sender: FDA-Public Use
  Company Number: GB-AVENTIS-200611130GDDC

PATIENT
  Age: 35 Year
  Sex: Female
  Weight: 60 kg

DRUGS (2)
  1. METRONIDAZOLE [Suspect]
     Indication: PERIODONTITIS
     Route: 048
     Dates: start: 20051122, end: 20051123
  2. PENICILLIN V [Suspect]
     Indication: PERIODONTITIS
     Route: 048
     Dates: start: 20051122, end: 20051123

REACTIONS (1)
  - HEADACHE [None]
